FAERS Safety Report 24003388 (Version 1)
Quarter: 2024Q2

REPORT INFORMATION
  Report Type: Spontaneous
  Country: US (occurrence: US)
  Receive Date: 20240624
  Receipt Date: 20240624
  Transmission Date: 20240715
  Serious: No
  Sender: FDA-Public Use
  Company Number: US-ROCHE-10000001613

PATIENT
  Age: 80 Year
  Sex: Male

DRUGS (1)
  1. VABYSMO [Suspect]
     Active Substance: FARICIMAB\FARICIMAB-SVOA
     Indication: Neovascular age-related macular degeneration
     Dosage: INJECTION IN THE EYE EVERY 6 WEEKS
     Route: 050

REACTIONS (6)
  - Vision blurred [Unknown]
  - Lacrimation increased [Unknown]
  - Foreign body sensation in eyes [Unknown]
  - Visual impairment [Unknown]
  - Off label use [Unknown]
  - Subretinal fluid [Unknown]
